FAERS Safety Report 13902962 (Version 3)
Quarter: 2021Q1

REPORT INFORMATION
  Report Type: Report from Study
  Country: PL (occurrence: PL)
  Receive Date: 20170824
  Receipt Date: 20210120
  Transmission Date: 20210419
  Serious: Yes (Death)
  Sender: FDA-Public Use
  Company Number: PL-AMGEN-POLCT2017097667

PATIENT
  Age: 71 Year
  Sex: Male
  Weight: 102 kg

DRUGS (24)
  1. FRAXIPARINE [Concomitant]
     Active Substance: NADROPARIN CALCIUM
     Dosage: UNK
     Dates: start: 20170523, end: 20170613
  2. POLPRIL [Concomitant]
     Active Substance: RAMIPRIL
     Dosage: 10 MILLIGRAM
     Dates: start: 20170522, end: 20170623
  3. BETALOC ZOK [Concomitant]
     Active Substance: METOPROLOL SUCCINATE
     Dosage: 50 MILLIGRAM
     Dates: start: 20160507, end: 20170623
  4. BIOTRAXON [Concomitant]
     Dosage: UNK
     Dates: start: 20170527, end: 20170613
  5. AMLODIPINE [Concomitant]
     Active Substance: AMLODIPINE BESYLATE
     Dosage: 10 MILLIGRAM
     Dates: start: 20140522, end: 20170623
  6. ISOKET [Concomitant]
     Active Substance: ISOSORBIDE DINITRATE
     Dosage: UNK
     Dates: start: 20170522, end: 20170613
  7. VIGANTOLETTEN [Concomitant]
     Active Substance: CHOLECALCIFEROL
     Dosage: 1000 INTERNATIONAL UNIT
     Dates: start: 20170522, end: 20170623
  8. LEVEMIR [Concomitant]
     Active Substance: INSULIN DETEMIR
     Dosage: 10 INTERNATIONAL UNIT
     Dates: start: 20170523, end: 20170622
  9. ASPIRIN [ACETYLSALICYLIC ACID] [Concomitant]
     Active Substance: ASPIRIN
  10. EVOLOCUMAB [Suspect]
     Active Substance: EVOLOCUMAB
     Indication: DYSLIPIDAEMIA
     Dosage: 1 MILLILITER
     Route: 058
     Dates: start: 20160922, end: 20170613
  11. CLOPIDOGREL [Concomitant]
     Active Substance: CLOPIDOGREL BISULFATE
     Dosage: 75 MILLIGRAM
     Dates: start: 20170614, end: 20170623
  12. BISEPTOL [Concomitant]
     Active Substance: SULFAMETHOXAZOLE\TRIMETHOPRIM
     Indication: URINARY TRACT INFECTION
     Dosage: 960 MILLIGRAM
     Route: 048
     Dates: start: 20170622, end: 20170623
  13. EFFOX [Concomitant]
     Active Substance: ISOSORBIDE MONONITRATE
     Dosage: UNK
     Dates: start: 20170522, end: 20170613
  14. ACARD [ACETYLSALICYLIC ACID] [Concomitant]
     Dosage: 75 MILLIGRAM
     Dates: start: 20170522, end: 20170613
  15. INSULIN [Concomitant]
     Active Substance: INSULIN NOS
     Dosage: UNK
  16. ENOXAPARIN [Concomitant]
     Active Substance: ENOXAPARIN
     Dosage: UNK
  17. LIPANTHYL [Concomitant]
     Active Substance: FENOFIBRATE
     Dosage: 215 MILLIGRAM
     Route: 048
     Dates: start: 20130819, end: 20170623
  18. RIVAROXABAN [Concomitant]
     Active Substance: RIVAROXABAN
     Dosage: UNK
  19. NOVORAPID [Concomitant]
     Active Substance: INSULIN ASPART
     Dosage: 16 INTERNATIONAL UNIT
     Dates: start: 20170309, end: 20170623
  20. KETREL [Concomitant]
     Active Substance: TRETINOIN
     Dosage: 12.5?25 MILLIGRAM
     Dates: start: 20170522, end: 20170623
  21. ATORVASTATIN [Concomitant]
     Active Substance: ATORVASTATIN
     Indication: DYSLIPIDAEMIA
     Dosage: 20 MILLIGRAM
     Dates: start: 20130819, end: 20170623
  22. POTASSIUM CHLORIDE. [Concomitant]
     Active Substance: POTASSIUM CHLORIDE
     Dosage: 1 UNK
     Dates: start: 20170522, end: 20170613
  23. ATRAUMAN AG [Concomitant]
     Dosage: 1 UNK
     Dates: start: 20170210, end: 20170623
  24. XARELTO [Concomitant]
     Active Substance: RIVAROXABAN
     Dosage: 20 MILLIGRAM
     Dates: start: 20170613, end: 20170623

REACTIONS (1)
  - Cardiac failure acute [Fatal]

NARRATIVE: CASE EVENT DATE: 20170624
